FAERS Safety Report 11602818 (Version 1)
Quarter: 2015Q4

REPORT INFORMATION
  Report Type: Spontaneous
  Country: US (occurrence: US)
  Receive Date: 20151006
  Receipt Date: 20151006
  Transmission Date: 20160304
  Serious: No
  Sender: FDA-Public Use
  Company Number: US-AMGEN-USASP2015084463

PATIENT
  Age: 66 Year
  Sex: Female

DRUGS (2)
  1. PROLIA [Suspect]
     Active Substance: DENOSUMAB
     Indication: OSTEOPOROSIS POSTMENOPAUSAL
     Dosage: UNK, Q6MO
     Route: 065
     Dates: start: 201407
  2. VITAMINS                           /00067501/ [Concomitant]
     Active Substance: VITAMINS

REACTIONS (7)
  - Drug dose omission [Unknown]
  - Back pain [Recovering/Resolving]
  - Injection site pain [Unknown]
  - Sleep disorder due to a general medical condition [Unknown]
  - Gait disturbance [Unknown]
  - Mobility decreased [Unknown]
  - Pain in extremity [Unknown]
